FAERS Safety Report 6108810-X (Version None)
Quarter: 2009Q1

REPORT INFORMATION
  Report Type: 
  Country: None (occurrence: None)
  Receive Date: 20090310
  Receipt Date: 20090303
  Transmission Date: 20090719
  Serious: Yes (Hospitalization, Disabling, Other)
  Sender: FDA-Public Use
  Company Number: US-BAYER-200912205NA

PATIENT
  Age: 32 Year
  Sex: Female
  Weight: 61 kg

DRUGS (1)
  1. MIRENA [Suspect]
     Indication: CONTRACEPTION
     Route: 015
     Dates: start: 20081125, end: 20090130

REACTIONS (3)
  - IUD MIGRATION [None]
  - PAIN [None]
  - POST PROCEDURAL HAEMORRHAGE [None]
